FAERS Safety Report 7884848-7 (Version None)
Quarter: 2011Q4

REPORT INFORMATION
  Report Type: 
  Country: None (occurrence: None)
  Receive Date: 20111102
  Receipt Date: 20111025
  Transmission Date: 20120403
  Serious: Yes (Other)
  Sender: FDA-Public Use
  Company Number: PHHY2011DE95734

PATIENT
  Sex: Female

DRUGS (3)
  1. ALPHA-ADRENOCEPTOR BLOCKING AGENTS [Concomitant]
  2. DIOVAN HCT [Suspect]
     Indication: ESSENTIAL HYPERTENSION
     Dosage: 1 DF, UNK
     Route: 048
     Dates: start: 20020226, end: 20111013
  3. BETA BLOCKING AGENTS [Concomitant]

REACTIONS (2)
  - DIABETES MELLITUS [None]
  - HYPERTENSION [None]
